FAERS Safety Report 8394307-3 (Version None)
Quarter: 2012Q1

REPORT INFORMATION
  Report Type: 
  Country: None (occurrence: None)
  Receive Date: 20120323
  Receipt Date: 20110524
  Transmission Date: 20120608
  Serious: Yes (Hospitalization)
  Sender: FDA-Public Use
  Company Number: 163-21880-11050727

PATIENT
  Age: 69 Year
  Sex: Female

DRUGS (16)
  1. FOLIC ACID (FOLIC ACID)(UNKNOWN) [Concomitant]
  2. DOVONEX (CALCIPOTRIOL)(OINTMENT) [Concomitant]
  3. PEPCID (FAMOTIDINE)(UNKNOWN) [Concomitant]
  4. REVLIMID [Suspect]
     Indication: MULTIPLE MYELOMA
     Dosage: 15 MG, DAILY X 21 DAYS, PO
     Route: 048
     Dates: start: 20110119, end: 20110401
  5. KLONOPIN [Concomitant]
  6. LYRICA [Concomitant]
  7. FENTANYL-100 [Concomitant]
  8. CLOBETASOL PROPIONATE (CLOBIETASOL PROPIONATE)(UNKNOWN) [Concomitant]
  9. NEUPOGEN (FILGRASTIM)(UNKNOWN) [Concomitant]
  10. PACKED RED BLOOD CELLS (RED BLOOD CELLS, CONCENTRATED)(UNKNOWN) [Concomitant]
  11. VITAMIN B6 (PYRIDOXINE HYDROCHLORIDE)(UNKNOWN) [Concomitant]
  12. LOVENOX [Concomitant]
  13. TRICOR (FENOFIBRATE)(UNKNOWN) [Concomitant]
  14. BABY ASA (ACETYLSALICYLIC ACID)(UNKNOWN) [Concomitant]
  15. CALCIUM (CALCIUM)(UNKNOWN) [Concomitant]
  16. MULTIVITAMINS (MULTIVITAMINS)(TABLETS) [Concomitant]

REACTIONS (2)
  - PNEUMONIA [None]
  - URINARY TRACT INFECTION [None]
